FAERS Safety Report 4745094-9 (Version None)
Quarter: 2005Q3

REPORT INFORMATION
  Report Type: 
  Country: None (occurrence: None)
  Receive Date: 20050815
  Receipt Date: 20050801
  Transmission Date: 20060218
  Serious: Yes (Hospitalization)
  Sender: FDA-Public Use
  Company Number: US-JNJFOC-20050200207

PATIENT
  Sex: Male

DRUGS (14)
  1. TYLENOL (CAPLET) [Suspect]
     Route: 048
  2. TYLENOL (CAPLET) [Suspect]
     Indication: HEAD INJURY
     Dosage: ^LARGE^ AMOUNT
     Route: 048
  3. GOODY'S POWDER [Suspect]
     Route: 048
  4. GOODY'S POWDER [Suspect]
     Route: 048
  5. GOODY'S POWDER [Suspect]
     Indication: HEAD INJURY
     Dosage: ^LIKE CANDY^
     Route: 048
  6. BC HEADACHE POWDER [Suspect]
     Route: 048
  7. BC HEADACHE POWDER [Suspect]
     Route: 048
  8. BC HEADACHE POWDER [Suspect]
     Indication: HEADACHE
     Dosage: Q 4 HOURS FOR SEVERAL YEARS, ORAL
     Route: 048
  9. PERCOCET [Suspect]
     Dosage: 3-4 TABLETS PER DAY
  10. PERCOCET [Suspect]
     Indication: HEAD INJURY
     Dosage: AS MANY AS 8-10 DAILY
  11. ASPIRIN [Suspect]
     Indication: DRUG USE FOR UNKNOWN INDICATION
  12. IBUPROFEN [Suspect]
     Indication: DRUG USE FOR UNKNOWN INDICATION
     Dosage: SEMI-REGULAR BASIS
  13. ZOLPIDEM TARTRATE [Concomitant]
  14. AMBIEN [Concomitant]

REACTIONS (39)
  - ACCELERATED HYPERTENSION [None]
  - BLEEDING TIME ABNORMAL [None]
  - BLOOD ALBUMIN DECREASED [None]
  - BLOOD GLUCOSE INCREASED [None]
  - BRADYCARDIA [None]
  - CARDIAC FAILURE CONGESTIVE [None]
  - CARDIAC MURMUR [None]
  - CORONARY ARTERY DISEASE [None]
  - CORONARY ARTERY STENOSIS [None]
  - DECREASED APPETITE [None]
  - DEHYDRATION [None]
  - DIALYSIS [None]
  - DIASTOLIC DYSFUNCTION [None]
  - DILATATION VENTRICULAR [None]
  - DIZZINESS [None]
  - DRUG HYPERSENSITIVITY [None]
  - EROSIVE OESOPHAGITIS [None]
  - GASTRITIS EROSIVE [None]
  - GASTRITIS HAEMORRHAGIC [None]
  - GASTROENTERITIS [None]
  - HAEMODIALYSIS [None]
  - HYPERSOMNIA [None]
  - HYPERTENSION [None]
  - INTENTIONAL MISUSE [None]
  - IRON DEFICIENCY ANAEMIA [None]
  - MYOCARDIAL INFARCTION [None]
  - NEPHROGENIC ANAEMIA [None]
  - NEPHROPATHY TOXIC [None]
  - NEPHROTIC SYNDROME [None]
  - OESOPHAGEAL ULCER [None]
  - ORAL INTAKE REDUCED [None]
  - PALPITATIONS [None]
  - PULMONARY OEDEMA [None]
  - REFUSAL OF TREATMENT BY PATIENT [None]
  - RENAL FAILURE ACUTE [None]
  - RHABDOMYOLYSIS [None]
  - SUPRAVENTRICULAR EXTRASYSTOLES [None]
  - VENTRICULAR HYPERTROPHY [None]
  - VIRAL INFECTION [None]
